FAERS Safety Report 5753110-0 (Version None)
Quarter: 2008Q2

REPORT INFORMATION
  Report Type: 
  Country: None (occurrence: None)
  Receive Date: 20080530
  Receipt Date: 20080527
  Transmission Date: 20081010
  Serious: Yes (Other)
  Sender: FDA-Public Use
  Company Number: US-SP-2008-01393

PATIENT
  Age: 52 Year
  Sex: Female

DRUGS (3)
  1. TUBERSOL [Suspect]
     Indication: TUBERCULIN TEST
     Route: 023
     Dates: start: 20080418
  2. TUBERSOL [Suspect]
     Route: 023
     Dates: start: 20080418
  3. BENADRYL [Concomitant]
     Dosage: PRE-MEDICATION
     Dates: start: 20080418

REACTIONS (3)
  - PRURITUS GENERALISED [None]
  - THROAT IRRITATION [None]
  - THROAT TIGHTNESS [None]
